FAERS Safety Report 8041708-9 (Version None)
Quarter: 2012Q1

REPORT INFORMATION
  Report Type: 
  Country: None (occurrence: None)
  Receive Date: 20120112
  Receipt Date: 20120105
  Transmission Date: 20120608
  Serious: Yes (Other)
  Sender: FDA-Public Use
  Company Number: US-JNJFOC-20120102554

PATIENT
  Age: 28 Year
  Sex: Male
  Weight: 81.65 kg

DRUGS (2)
  1. VISINE L.R. [Suspect]
     Route: 047
  2. VISINE L.R. [Suspect]
     Indication: OCULAR HYPERAEMIA
     Dosage: THREE DROPS IN EACH EYE
     Route: 047
     Dates: start: 20120105, end: 20120105

REACTIONS (5)
  - OCULAR HYPERAEMIA [None]
  - PRODUCT QUALITY ISSUE [None]
  - INCORRECT DOSE ADMINISTERED [None]
  - EYE IRRITATION [None]
  - VISION BLURRED [None]
